FAERS Safety Report 9833738 (Version 4)
Quarter: 2014Q3

REPORT INFORMATION
  Report Type: Spontaneous
  Country: US (occurrence: US)
  Receive Date: 20140122
  Receipt Date: 20140805
  Transmission Date: 20150326
  Serious: Yes (Other)
  Sender: FDA-Public Use
  Company Number: US-THROMBOGENICS INC.-JET-2014-011

PATIENT
  Age: 71 Year
  Sex: Female

DRUGS (1)
  1. JETREA [Suspect]
     Active Substance: OCRIPLASMIN
     Indication: VITREOUS ADHESIONS
     Dosage: 0.125 MG, ONE TIME DOSE
     Route: 031
     Dates: start: 20130418, end: 20130418

REACTIONS (10)
  - Night blindness [Unknown]
  - Photopsia [Not Recovered/Not Resolved]
  - Metamorphopsia [Recovering/Resolving]
  - Retinogram abnormal [Not Recovered/Not Resolved]
  - Retinal injury [Not Recovered/Not Resolved]
  - Chromatopsia [Recovered/Resolved]
  - Vitreous floaters [Unknown]
  - Vision blurred [Unknown]
  - Visual acuity reduced transiently [Recovered/Resolved]
  - Visual impairment [Not Recovered/Not Resolved]

NARRATIVE: CASE EVENT DATE: 20130418
